FAERS Safety Report 11785799 (Version 1)
Quarter: 2015Q4

REPORT INFORMATION
  Report Type: Spontaneous
  Country: JP (occurrence: JP)
  Receive Date: 20151130
  Receipt Date: 20151130
  Transmission Date: 20160305
  Serious: Yes (Hospitalization)
  Sender: FDA-Public Use
  Company Number: JP-TEVA-611474ISR

PATIENT
  Age: 76 Year
  Sex: Male
  Weight: 62 kg

DRUGS (9)
  1. HOCHUEKKITO [Concomitant]
     Active Substance: HERBALS
     Dosage: 2 DOSAGE FORMS DAILY;
     Route: 048
  2. NORITREN [Concomitant]
     Active Substance: NORTRIPTYLINE HYDROCHLORIDE
     Dosage: 10 MILLIGRAM DAILY;
     Route: 048
  3. E-FEN BUCCAL [Suspect]
     Active Substance: FENTANYL CITRATE
     Indication: BREAKTHROUGH PAIN
     Dosage: 50-100 MICROG  DAILY
     Route: 002
     Dates: start: 20151014, end: 20151018
  4. GABAPEN [Concomitant]
     Active Substance: GABAPENTIN
     Indication: CANCER PAIN
     Dosage: 800 MILLIGRAM DAILY;
     Route: 048
     Dates: start: 20151016
  5. OXYCODONE HYDROCHLORIDE HYDRATE [Concomitant]
     Active Substance: OXYCODONE HYDROCHLORIDE
     Indication: CANCER PAIN
     Dosage: 10 MILLIGRAM DAILY;
     Route: 048
     Dates: start: 20151016
  6. MAGNESIUM OXIDE. [Concomitant]
     Active Substance: MAGNESIUM OXIDE
     Dosage: 990 MILLIGRAM DAILY;
     Route: 048
  7. GOSHAJINKIGAN [Concomitant]
     Active Substance: HERBALS
     Dosage: 2 DOSAGE FORMS DAILY;
     Route: 048
  8. FENTANYL CITRATE. [Concomitant]
     Active Substance: FENTANYL CITRATE
     Indication: CANCER PAIN
     Dosage: 1 MILLIGRAM DAILY;
     Route: 062
     Dates: start: 20151021
  9. MORPHINE SULFATE HYDRATE [Concomitant]
     Indication: CANCER PAIN
     Dosage: 20 MILLIGRAM DAILY;
     Route: 048
     Dates: start: 20150930, end: 20151015

REACTIONS (1)
  - Malaise [Not Recovered/Not Resolved]

NARRATIVE: CASE EVENT DATE: 20151019
